FAERS Safety Report 4491026-0 (Version None)
Quarter: 2004Q3

REPORT INFORMATION
  Report Type: 
  Country: None (occurrence: None)
  Receive Date: 20040927
  Receipt Date: 20040806
  Transmission Date: 20050211
  Serious: No
  Sender: FDA-Public Use
  Company Number: USA040874941

PATIENT
  Age: 9 Year
  Sex: Female
  Weight: 25 kg

DRUGS (1)
  1. STRATTERA [Suspect]
     Indication: ATTENTION DEFICIT/HYPERACTIVITY DISORDER
     Dosage: 38 MG DAY
     Dates: start: 20031001, end: 20040731

REACTIONS (4)
  - ALOPECIA [None]
  - HYPOTRICHOSIS [None]
  - PRESCRIBED OVERDOSE [None]
  - WEIGHT DECREASED [None]
